FAERS Safety Report 5989502-4 (Version None)
Quarter: 2008Q4

REPORT INFORMATION
  Report Type: 
  Country: None (occurrence: None)
  Receive Date: 20081210
  Receipt Date: 20081201
  Transmission Date: 20090506
  Serious: Yes (Life-Threatening, Hospitalization, Other)
  Sender: FDA-Public Use
  Company Number: FR-ALLERGAN-0815213US

PATIENT
  Sex: Female

DRUGS (17)
  1. BOTOX [Suspect]
     Indication: HYPERTONIC BLADDER
     Dosage: 300 UNITS, SINGLE
     Route: 043
     Dates: start: 20070529, end: 20070529
  2. ATARAX [Suspect]
     Indication: DRUG USE FOR UNKNOWN INDICATION
     Dosage: 100 MG, UNK
     Dates: start: 20070529
  3. XANAX [Suspect]
     Indication: DRUG USE FOR UNKNOWN INDICATION
     Dosage: 0.5 UG, UNK
     Dates: start: 20070529
  4. BETADINE [Suspect]
     Indication: PROPHYLAXIS
     Dates: start: 20070529
  5. DIPRIVAN [Suspect]
     Indication: GENERAL ANAESTHESIA
     Dosage: UNK, SINGLE
     Route: 042
     Dates: start: 20070529, end: 20070529
  6. SUFENTA PRESERVATIVE FREE [Suspect]
     Indication: GENERAL ANAESTHESIA
     Dosage: UNK, SINGLE
     Route: 042
     Dates: start: 20070529, end: 20070529
  7. XYLOCAINE [Suspect]
     Indication: DRUG USE FOR UNKNOWN INDICATION
     Dosage: UNK, SINGLE
     Dates: start: 20070529, end: 20070529
  8. PERFALGAN [Suspect]
     Indication: DRUG USE FOR UNKNOWN INDICATION
     Dates: start: 20070529
  9. PROFENID [Suspect]
     Indication: DRUG USE FOR UNKNOWN INDICATION
     Dates: start: 20070529
  10. KEFANDOL [Suspect]
     Indication: DRUG USE FOR UNKNOWN INDICATION
     Dates: start: 20070529
  11. SELOKEN [Concomitant]
     Indication: DRUG USE FOR UNKNOWN INDICATION
  12. RELPAX [Concomitant]
     Indication: DRUG USE FOR UNKNOWN INDICATION
  13. ABUFENE [Concomitant]
     Indication: DRUG USE FOR UNKNOWN INDICATION
  14. RHINOCORT [Concomitant]
     Indication: DRUG USE FOR UNKNOWN INDICATION
  15. FOSAVANCE [Concomitant]
     Indication: DRUG USE FOR UNKNOWN INDICATION
  16. SURGAM [Concomitant]
     Indication: DRUG USE FOR UNKNOWN INDICATION
  17. BI-PROFENID [Concomitant]
     Indication: DRUG USE FOR UNKNOWN INDICATION

REACTIONS (5)
  - ANAPHYLACTOID REACTION [None]
  - DYSPNOEA [None]
  - HYPOTENSION [None]
  - OROPHARYNGEAL DISCOMFORT [None]
  - URTICARIA [None]
